FAERS Safety Report 4753266-2 (Version None)
Quarter: 2005Q3

REPORT INFORMATION
  Report Type: 
  Country: None (occurrence: None)
  Receive Date: 20050824
  Receipt Date: 20050811
  Transmission Date: 20060218
  Serious: Yes (Other)
  Sender: FDA-Public Use
  Company Number: 2005US000877

PATIENT
  Age: 63 Year
  Sex: Male
  Weight: 86.2 kg

DRUGS (1)
  1. PROTOPIC [Suspect]
     Indication: DERMATITIS ATOPIC
     Dosage: BID, TOPICAL
     Route: 061
     Dates: start: 20010601, end: 20020501

REACTIONS (4)
  - DISEASE RECURRENCE [None]
  - LYMPHOMA [None]
  - MASS [None]
  - STEM CELL TRANSPLANT [None]
